FAERS Safety Report 9888489 (Version 2)
Quarter: 2014Q3

REPORT INFORMATION
  Report Type: Spontaneous
  Country: GB (occurrence: GB)
  Receive Date: 20140211
  Receipt Date: 20140805
  Transmission Date: 20150326
  Serious: Yes (Other)
  Sender: FDA-Public Use
  Company Number: GB-TEVA-461451ISR

PATIENT
  Age: 83 Year
  Sex: Female

DRUGS (3)
  1. MEMANTINE [Suspect]
     Active Substance: MEMANTINE
     Indication: PRODUCT USED FOR UNKNOWN INDICATION
     Dosage: 20 MILLIGRAM DAILY;
     Route: 048
  2. EZETIMIBE. [Concomitant]
     Active Substance: EZETIMIBE
  3. NITROFURANTOIN. [Concomitant]
     Active Substance: NITROFURANTOIN

REACTIONS (1)
  - Fall [Unknown]
